FAERS Safety Report 16965302 (Version 3)
Quarter: 2020Q1

REPORT INFORMATION
  Report Type: Report from Study
  Country: CO (occurrence: CO)
  Receive Date: 20191028
  Receipt Date: 20200113
  Transmission Date: 20200409
  Serious: Yes (Hospitalization, Other)
  Sender: FDA-Public Use
  Company Number: CO-ASTELLAS-2019US007077

PATIENT
  Age: 40 Year
  Sex: Female
  Weight: 53 kg

DRUGS (13)
  1. TACROLIMUS. [Suspect]
     Active Substance: TACROLIMUS
     Dosage: 1 MG, ONCE DAILY (1 CAPSULE OF 1MG)
     Route: 048
     Dates: start: 20191124
  2. TACROLIMUS. [Suspect]
     Active Substance: TACROLIMUS
     Route: 048
  3. TACROLIMUS. [Suspect]
     Active Substance: TACROLIMUS
     Route: 048
  4. MYCOPHENOLATE [Suspect]
     Active Substance: MYCOPHENOLIC ACID
     Indication: RENAL TRANSPLANT
     Route: 048
     Dates: start: 20180527
  5. TACROLIMUS. [Suspect]
     Active Substance: TACROLIMUS
     Dosage: 7 MG, UNKNOWN FREQ. (4MG AT MORNING AND 3MG AT AFTERNOON)
     Route: 048
     Dates: start: 201903, end: 201905
  6. TACROLIMUS. [Suspect]
     Active Substance: TACROLIMUS
     Route: 048
     Dates: start: 20191001, end: 20191123
  7. MICOTRAZOL [Concomitant]
     Indication: BACTERIAL INFECTION
     Route: 048
     Dates: start: 201909
  8. LOSARTAN. [Concomitant]
     Active Substance: LOSARTAN
     Indication: BLOOD PRESSURE MEASUREMENT
     Route: 048
     Dates: start: 201909, end: 20191202
  9. TACROLIMUS. [Suspect]
     Active Substance: TACROLIMUS
     Indication: RENAL TRANSPLANT
     Dosage: 7 MG ( 4MG IN MORNING AND 3MG AT AFTERNOON)
     Route: 048
     Dates: start: 20180527
  10. TACROLIMUS. [Suspect]
     Active Substance: TACROLIMUS
     Dosage: 5 MG, UNKNOWN FREQ. (3MG IN MORNING AND 2MG IN AFTERNOON)
     Route: 048
     Dates: start: 201905, end: 20190930
  11. TACROLIMUS. [Suspect]
     Active Substance: TACROLIMUS
     Indication: RENAL TRANSPLANT
     Route: 048
     Dates: start: 20180527, end: 201903
  12. CHLOROQUINE. [Concomitant]
     Active Substance: CHLOROQUINE
     Indication: PRODUCT USED FOR UNKNOWN INDICATION
     Route: 048
  13. CARVEDILOL. [Concomitant]
     Active Substance: CARVEDILOL
     Indication: BLOOD PRESSURE MEASUREMENT
     Route: 048

REACTIONS (6)
  - Urinary tract infection [Recovered/Resolved]
  - Urinary tract infection [Recovered/Resolved]
  - Underweight [Unknown]
  - Immunodeficiency [Unknown]
  - Diarrhoea [Not Recovered/Not Resolved]
  - Immunosuppressant drug level increased [Recovering/Resolving]

NARRATIVE: CASE EVENT DATE: 20190218
